FAERS Safety Report 7176624-8 (Version None)
Quarter: 2010Q4

REPORT INFORMATION
  Report Type: 
  Country: None (occurrence: None)
  Receive Date: 20101220
  Receipt Date: 20101208
  Transmission Date: 20110411
  Serious: Yes (Other)
  Sender: FDA-Public Use
  Company Number: PHBS2005JP16492

PATIENT
  Age: 63 Year
  Sex: Female

DRUGS (8)
  1. TEGRETOL [Suspect]
     Indication: EPILEPSY
     Dosage: 200 MG/DAY
     Route: 048
     Dates: start: 19990101
  2. TEGRETOL [Interacting]
     Dosage: 1200 MG/DAY
     Route: 048
     Dates: end: 20031002
  3. TEGRETOL [Interacting]
     Dosage: 600 MG/DAY
     Route: 048
     Dates: start: 20031008
  4. TEGRETOL [Interacting]
     Dosage: 500 MG/DAY
     Route: 048
  5. DEPAKENE [Interacting]
     Indication: EPILEPSY
     Dosage: 200 MG/DAY
     Route: 048
     Dates: start: 19930101
  6. DEPAKENE [Interacting]
     Dosage: 1200 MG/DAY
     Route: 048
  7. DEPAKENE [Interacting]
     Dosage: 500 MG/DAY
     Route: 048
  8. ISOBIDE [Concomitant]
     Dosage: 90 ML/DAY
     Route: 048
     Dates: start: 19970101

REACTIONS (19)
  - BALANCE DISORDER [None]
  - CEREBELLAR ATAXIA [None]
  - DEAFNESS NEUROSENSORY [None]
  - DIPLOPIA [None]
  - DIZZINESS [None]
  - DRUG TOXICITY [None]
  - EPILEPSY [None]
  - GAIT DISTURBANCE [None]
  - MENINGIOMA [None]
  - MENINGIOMA SURGERY [None]
  - NASOPHARYNGITIS [None]
  - NYSTAGMUS [None]
  - OSCILLOPSIA [None]
  - POSITIVE ROMBERGISM [None]
  - SACCADIC EYE MOVEMENT [None]
  - SPEECH DISORDER [None]
  - TENSILON TEST ABNORMAL [None]
  - VERTIGO [None]
  - VISUAL IMPAIRMENT [None]
